FAERS Safety Report 16973098 (Version 1)
Quarter: 2019Q4

REPORT INFORMATION
  Report Type: Report from Study
  Country: CN (occurrence: CN)
  Receive Date: 20191030
  Receipt Date: 20191030
  Transmission Date: 20200122
  Serious: Yes (Death, Hospitalization, Other)
  Sender: FDA-Public Use
  Company Number: CN-ROCHE-2313563

PATIENT
  Age: 50 Year
  Sex: Female
  Weight: 50 kg

DRUGS (1)
  1. AVASTIN [Suspect]
     Active Substance: BEVACIZUMAB
     Indication: COLON CANCER
     Route: 041
     Dates: start: 20170116

REACTIONS (4)
  - Small intestinal obstruction [Not Recovered/Not Resolved]
  - Intestinal obstruction [Unknown]
  - Cardiopulmonary failure [Fatal]
  - Asthenia [Unknown]

NARRATIVE: CASE EVENT DATE: 20190501
